FAERS Safety Report 24539118 (Version 1)
Quarter: 2024Q4

REPORT INFORMATION
  Report Type: Spontaneous
  Country: GR (occurrence: GR)
  Receive Date: 20241023
  Receipt Date: 20241023
  Transmission Date: 20250114
  Serious: Yes (Other)
  Sender: CELLTRION
  Company Number: GR-CELLTRION INC.-2024GR025771

PATIENT

DRUGS (1)
  1. INFLIXIMAB [Suspect]
     Active Substance: INFLIXIMAB
     Indication: Colitis ulcerative
     Dosage: 300 MG INDUCTION SCHEME (3X100MG)
     Route: 041
     Dates: start: 20240926, end: 20241010

REACTIONS (2)
  - Colitis ulcerative [Not Recovered/Not Resolved]
  - Overdose [Unknown]
